FAERS Safety Report 5659946-9 (Version None)
Quarter: 2008Q1

REPORT INFORMATION
  Report Type: 
  Country: None (occurrence: None)
  Receive Date: 20080311
  Receipt Date: 20070815
  Transmission Date: 20080703
  Serious: No
  Sender: FDA-Public Use
  Company Number: US-BAYER-200712638BCC

PATIENT
  Age: 70 Year
  Sex: Female
  Weight: 100 kg

DRUGS (4)
  1. ALEVE [Suspect]
     Indication: ARTHRALGIA
     Route: 048
     Dates: start: 20070201
  2. GLUCOPHAGE [Concomitant]
  3. LASIX [Concomitant]
  4. PLENDIL [Concomitant]

REACTIONS (1)
  - DYSPEPSIA [None]
